FAERS Safety Report 24024320 (Version 1)
Quarter: 2024Q2

REPORT INFORMATION
  Report Type: Report from Study
  Country: AU (occurrence: AU)
  Receive Date: 20240627
  Receipt Date: 20240627
  Transmission Date: 20240716
  Serious: No
  Sender: FDA-Public Use
  Company Number: AU-ROCHE-3556668

PATIENT
  Age: 42 Year
  Sex: Female
  Weight: 64.1 kg

DRUGS (11)
  1. ALECTINIB [Suspect]
     Active Substance: ALECTINIB
     Indication: Non-small cell lung cancer metastatic
     Route: 048
     Dates: start: 20220131
  2. ACETAMINOPHEN [Concomitant]
     Active Substance: ACETAMINOPHEN
     Dates: start: 20220929
  3. NIZATIDINE [Concomitant]
     Active Substance: NIZATIDINE
     Route: 048
     Dates: start: 2021
  4. RIVAROXABAN [Concomitant]
     Active Substance: RIVAROXABAN
  5. MOVICOL [Concomitant]
     Active Substance: POLYETHYLENE GLYCOL 3350\POTASSIUM CHLORIDE\SODIUM BICARBONATE\SODIUM CHLORIDE
  6. BENEFIBER [Concomitant]
     Active Substance: STARCH, WHEAT
  7. DOXYCYCLINE [Concomitant]
     Active Substance: DOXYCYCLINE\DOXYCYCLINE HYCLATE
  8. IVERMECTIN [Concomitant]
     Active Substance: IVERMECTIN
  9. METRONIDAZOLE [Concomitant]
     Active Substance: METRONIDAZOLE
  10. LORLATINIB [Concomitant]
     Active Substance: LORLATINIB
  11. ALECTINIB [Concomitant]
     Active Substance: ALECTINIB
     Route: 065

REACTIONS (1)
  - Sciatica [Not Recovered/Not Resolved]

NARRATIVE: CASE EVENT DATE: 20220929
